FAERS Safety Report 24072118 (Version 1)
Quarter: 2024Q3

REPORT INFORMATION
  Report Type: Spontaneous
  Country: US (occurrence: None)
  Receive Date: 20240709
  Receipt Date: 20240709
  Transmission Date: 20241017
  Serious: No
  Sender: Public
  Company Number: None

PATIENT
  Age: 57 Year
  Sex: Male
  Weight: 95 kg

DRUGS (2)
  1. PENTAMIDINE [Suspect]
     Active Substance: PENTAMIDINE
     Indication: Pneumonia
     Dosage: 300 MG ONCE INTRAVENOUS?
     Route: 042
     Dates: start: 20240619, end: 20240619
  2. PENTAMIDINE [Suspect]
     Active Substance: PENTAMIDINE
     Indication: Prophylaxis

REACTIONS (4)
  - Infusion related reaction [None]
  - Hypoaesthesia oral [None]
  - Eye pruritus [None]
  - Therapy cessation [None]

NARRATIVE: CASE EVENT DATE: 20240619
